FAERS Safety Report 7272497-3 (Version None)
Quarter: 2011Q1

REPORT INFORMATION
  Report Type: 
  Country: None (occurrence: None)
  Receive Date: 20110203
  Receipt Date: 20110126
  Transmission Date: 20110831
  Serious: Yes (Other)
  Sender: FDA-Public Use
  Company Number: RU-ROCHE-753880

PATIENT
  Sex: Female
  Weight: 76 kg

DRUGS (4)
  1. TOCILIZUMAB [Suspect]
     Indication: RHEUMATOID ARTHRITIS
     Dosage: FORM: VIAL DATE OF LAST DOSE PRIOR TO SAE 12-OCT-2010
     Route: 042
     Dates: start: 20100622, end: 20101015
  2. NIMESULID [Concomitant]
     Dates: start: 20091201
  3. METHOTREXATE [Suspect]
     Indication: RHEUMATOID ARTHRITIS
     Dosage: DATE OF LAST DOSE PRIOR TO SAE: 12 OCTOBER 2010.
     Route: 048
     Dates: start: 20100622, end: 20101015
  4. ACID FOLIC [Concomitant]
     Dosage: TDD: 5 MG/WEEK
     Dates: start: 20100623

REACTIONS (4)
  - ASPARTATE AMINOTRANSFERASE INCREASED [None]
  - HEPATIC ENZYME INCREASED [None]
  - BLOOD BILIRUBIN INCREASED [None]
  - ALANINE AMINOTRANSFERASE INCREASED [None]
